FAERS Safety Report 6394931-3 (Version None)
Quarter: 2009Q4

REPORT INFORMATION
  Report Type: 
  Country: None (occurrence: None)
  Receive Date: 20091009
  Receipt Date: 20090929
  Transmission Date: 20100525
  Serious: Yes (Hospitalization, Other)
  Sender: FDA-Public Use
  Company Number: GB-PFIZER INC-2008066591

PATIENT
  Age: 80 Year

DRUGS (6)
  1. ARTHROTEC [Suspect]
     Indication: ARTHRITIS
  2. AMITRIPTYLINE HCL [Interacting]
     Indication: DEPRESSION
  3. ATENOLOL [Interacting]
     Indication: HYPERTENSION
  4. LEVOTHYROXINE SODIUM [Interacting]
     Indication: HYPOTHYROIDISM
  5. PRAVASTATIN [Interacting]
     Indication: HYPERCHOLESTEROLAEMIA
  6. ASPIRIN [Interacting]

REACTIONS (2)
  - COLITIS [None]
  - DRUG INTERACTION [None]
